FAERS Safety Report 7225682-0 (Version None)
Quarter: 2011Q1

REPORT INFORMATION
  Report Type: 
  Country: None (occurrence: None)
  Receive Date: 20110113
  Receipt Date: 20110110
  Transmission Date: 20110831
  Serious: Yes (Other)
  Sender: FDA-Public Use
  Company Number: US-BRISTOL-MYERS SQUIBB COMPANY-15478308

PATIENT
  Sex: Male

DRUGS (1)
  1. ABILIFY [Suspect]
     Dosage: 1DF=1 TAB

REACTIONS (5)
  - PSYCHOMOTOR HYPERACTIVITY [None]
  - EMOTIONAL DISORDER [None]
  - HALLUCINATION [None]
  - INSOMNIA [None]
  - NEGATIVE THOUGHTS [None]
